FAERS Safety Report 7118703 (Version 5)
Quarter: 2013Q3

REPORT INFORMATION
  Report Type: Report from Study
  Country: JP (occurrence: JP)
  Receive Date: 20090918
  Receipt Date: 20130827
  Transmission Date: 20140515
  Serious: Yes (Hospitalization, Other)
  Sender: FDA-Public Use
  Company Number: PHHO2009JP08419

PATIENT
  Age: 51 Year
  Sex: Male
  Weight: 65 kg

DRUGS (13)
  1. ALISKIREN [Suspect]
     Indication: CARDIOVASCULAR DISORDER
     Route: 048
     Dates: start: 20081205, end: 20090708
  2. MICARDIS [Suspect]
  3. BAYASPIRIN [Concomitant]
  4. PANALDINE [Concomitant]
  5. LASIX [Concomitant]
  6. CRESTOR [Concomitant]
  7. FAMOTIDINE [Concomitant]
  8. ZETIA [Concomitant]
  9. CLOMIPRAMINE HYDROCHLORIDE [Concomitant]
  10. KINEDAK [Concomitant]
  11. MYSLEE [Concomitant]
  12. SHAKUYAKUKANZOUTOU [Concomitant]
  13. NOVORAPID [Concomitant]

REACTIONS (10)
  - Hyperkalaemia [Recovered/Resolved]
  - Dehydration [Recovered/Resolved]
  - Muscle spasms [Recovered/Resolved]
  - Malaise [Recovered/Resolved]
  - Headache [Recovered/Resolved]
  - Dizziness [Recovered/Resolved]
  - Nausea [Recovered/Resolved]
  - Vomiting [Recovered/Resolved]
  - Renal impairment [Recovered/Resolved]
  - Hyperglycaemia [Recovered/Resolved]
